FAERS Safety Report 15465137 (Version 1)
Quarter: 2018Q4

REPORT INFORMATION
  Report Type: Spontaneous
  Country: US (occurrence: US)
  Receive Date: 20181004
  Receipt Date: 20181004
  Transmission Date: 20190204
  Serious: Yes (Hospitalization, Other)
  Sender: FDA-Public Use
  Company Number: US-JAZZ-2018-US-002725

PATIENT
  Age: 8 Year

DRUGS (5)
  1. FENTANYL. [Concomitant]
     Active Substance: FENTANYL
     Indication: SEDATIVE THERAPY
     Dosage: UNK
  2. GRANISETRON [Concomitant]
     Active Substance: GRANISETRON
     Indication: PROPHYLAXIS OF NAUSEA AND VOMITING
     Dosage: UNK
  3. ERWINAZE [Suspect]
     Active Substance: ASPARAGINASE ERWINIA CHRYSANTHEMI
     Indication: T-CELL TYPE ACUTE LEUKAEMIA
     Dosage: 25000 IU/M2, M-W-F- X 6 DOSES
     Route: 042
     Dates: start: 20180122, end: 20180129
  4. PROPOFOL. [Concomitant]
     Active Substance: PROPOFOL
     Indication: SEDATIVE THERAPY
     Dosage: UNK
  5. METHOTREXATE. [Concomitant]
     Active Substance: METHOTREXATE
     Indication: CHEMOTHERAPY
     Dosage: 12 MG, SINGLE
     Route: 037
     Dates: start: 20180129

REACTIONS (1)
  - Anaphylactic reaction [Recovered/Resolved]
